FAERS Safety Report 6547049-0 (Version None)
Quarter: 2010Q1

REPORT INFORMATION
  Report Type: 
  Country: None (occurrence: None)
  Receive Date: 20100122
  Receipt Date: 20100113
  Transmission Date: 20100710
  Serious: Yes (Other)
  Sender: FDA-Public Use
  Company Number: US-PFIZER INC-2009315636

PATIENT
  Sex: Female
  Weight: 56.689 kg

DRUGS (10)
  1. ZITHROMAX [Suspect]
     Indication: LYME DISEASE
     Dosage: 500 MG, 1X/DAY
     Route: 042
  2. ROCEPHIN [Suspect]
     Dosage: UNK
  3. ALPHA LIPOIC ACID [Concomitant]
     Dosage: 200 MG, 2X/DAY
     Route: 048
  4. ASPIRIN C [Concomitant]
     Dosage: 81 MG, 1X/DAY
     Route: 048
  5. MILK THISTLE [Concomitant]
     Dosage: UNK
     Route: 048
  6. MULTI-VITAMINS [Concomitant]
     Dosage: UNK
     Route: 048
  7. OMEGA [Concomitant]
     Dosage: UNK
     Route: 048
  8. SUPER B [Concomitant]
     Dosage: UNK
     Route: 048
  9. GABAPENTIN [Concomitant]
     Dosage: 600 MG, 2X/DAY
     Route: 048
  10. LEVOTHYROXINE [Concomitant]
     Dosage: 88 UG, 1X/DAY
     Route: 048

REACTIONS (1)
  - PALPITATIONS [None]
